FAERS Safety Report 9887346 (Version 1)
Quarter: 2014Q1

REPORT INFORMATION
  Report Type: Report from Study
  Country: DE (occurrence: DE)
  Receive Date: 20140211
  Receipt Date: 20140211
  Transmission Date: 20141002
  Serious: Yes (Hospitalization)
  Sender: FDA-Public Use
  Company Number: DE-BRISTOL-MYERS SQUIBB COMPANY-20131272

PATIENT
  Age: 75 Year
  Sex: Female

DRUGS (2)
  1. ABATACEPT [Suspect]
     Dates: start: 201211
  2. METHOTREXATE [Suspect]
     Dosage: TO 50MG:JUL12
     Dates: start: 200401

REACTIONS (4)
  - Inflammation [Unknown]
  - Surgery [Unknown]
  - Tendon rupture [Unknown]
  - Nasopharyngitis [Unknown]
